FAERS Safety Report 10795029 (Version 4)
Quarter: 2015Q1

REPORT INFORMATION
  Report Type: Spontaneous
  Country: US (occurrence: US)
  Receive Date: 20150214
  Receipt Date: 20150216
  Transmission Date: 20150721
  Serious: No
  Sender: FDA-Public Use
  Company Number: US-GLAXOSMITHKLINE-A1074037A

PATIENT

DRUGS (7)
  1. SINGULAIR [Concomitant]
     Active Substance: MONTELUKAST SODIUM
  2. SEREVENT [Concomitant]
     Active Substance: SALMETEROL XINAFOATE
  3. XOPENEX [Concomitant]
     Active Substance: LEVALBUTEROL HYDROCHLORIDE
  4. SUMATRIPTAN. [Concomitant]
     Active Substance: SUMATRIPTAN
  5. CLARINEX [Concomitant]
     Active Substance: DESLORATADINE
  6. PATANASE [Concomitant]
     Active Substance: OLOPATADINE HYDROCHLORIDE
  7. VERAMYST [Suspect]
     Active Substance: FLUTICASONE FUROATE
     Indication: RHINITIS ALLERGIC
     Route: 045
     Dates: start: 2007

REACTIONS (2)
  - Migraine [Not Recovered/Not Resolved]
  - Headache [Unknown]
